FAERS Safety Report 6696909-9 (Version None)
Quarter: 2010Q2

REPORT INFORMATION
  Report Type: 
  Country: None (occurrence: None)
  Receive Date: 20100426
  Receipt Date: 20100414
  Transmission Date: 20101027
  Serious: Yes (Other)
  Sender: FDA-Public Use
  Company Number: PHHY2010DE24400

PATIENT
  Sex: Male

DRUGS (1)
  1. EUCREAS [Suspect]
     Dosage: 1 DF, BID
     Route: 048
     Dates: start: 20070101

REACTIONS (5)
  - ARRHYTHMIA [None]
  - ARTERIAL OCCLUSIVE DISEASE [None]
  - ERYSIPELAS [None]
  - PARKINSONISM [None]
  - VITAMIN B12 DEFICIENCY [None]
